FAERS Safety Report 10541684 (Version 3)
Quarter: 2015Q1

REPORT INFORMATION
  Report Type: Spontaneous
  Country: US (occurrence: US)
  Receive Date: 20141024
  Receipt Date: 20150216
  Transmission Date: 20150720
  Serious: No
  Sender: FDA-Public Use
  Company Number: US-ALLERGAN-1406795US

PATIENT
  Age: 75 Year
  Sex: Female

DRUGS (9)
  1. RESTASIS [Suspect]
     Active Substance: CYCLOSPORINE
     Indication: PREOPERATIVE CARE
     Dosage: 2 GTT, BID
     Route: 047
     Dates: end: 20140403
  2. OFLOXACIN UNK [Suspect]
     Active Substance: OFLOXACIN
     Indication: INFECTION PROPHYLAXIS
     Dosage: 2 GTT, QID
     Dates: start: 20140310
  3. DYAZIDE [Concomitant]
     Active Substance: HYDROCHLOROTHIAZIDE\TRIAMTERENE
     Indication: DIURETIC THERAPY
     Dosage: UNK
     Route: 048
  4. SYSTANE (HYPROMELLOSE 2910 (4000 MPA.S)) [Suspect]
     Active Substance: HYPROMELLOSE 2910 (4000 MPA.S)
     Indication: PRODUCT USED FOR UNKNOWN INDICATION
  5. PREDNISOLONE. [Suspect]
     Active Substance: PREDNISOLONE
     Indication: INFLAMMATION
     Dosage: 1 GTT, QID
  6. RESTASIS [Suspect]
     Active Substance: CYCLOSPORINE
     Dosage: UNK
     Route: 047
     Dates: start: 20140303
  7. BRIMONIDINE [Suspect]
     Active Substance: BRIMONIDINE\BRIMONIDINE TARTRATE
     Indication: POSTOPERATIVE CARE
     Dosage: 1 GTT, BID
     Dates: start: 20140310
  8. PREDNISOLONE. [Suspect]
     Active Substance: PREDNISOLONE
     Dosage: 1 GTT, QID
     Dates: start: 20140310
  9. DORZOLAMIDE [Suspect]
     Active Substance: DORZOLAMIDE
     Indication: PRODUCT USED FOR UNKNOWN INDICATION
     Dosage: UNK UNK, QID

REACTIONS (11)
  - Visual impairment [Recovered/Resolved]
  - Eye injury [Not Recovered/Not Resolved]
  - Off label use [Unknown]
  - Eye inflammation [Recovered/Resolved]
  - Incorrect dose administered [Unknown]
  - Astigmatism [Not Recovered/Not Resolved]
  - Vision blurred [Recovered/Resolved]
  - Photophobia [Not Recovered/Not Resolved]
  - Eye pain [Recovered/Resolved]
  - Eye pain [Recovered/Resolved]
  - Corneal dystrophy [Not Recovered/Not Resolved]

NARRATIVE: CASE EVENT DATE: 20140403
